FAERS Safety Report 13064390 (Version 3)
Quarter: 2017Q1

REPORT INFORMATION
  Report Type: Spontaneous
  Country: DZ (occurrence: DZ)
  Receive Date: 20161227
  Receipt Date: 20170221
  Transmission Date: 20170428
  Serious: Yes (Death, Life-Threatening, Hospitalization, Other)
  Sender: FDA-Public Use
  Company Number: DZ-JNJFOC-20161217062

PATIENT
  Age: 80 Year
  Sex: Male

DRUGS (4)
  1. SINTROM [Concomitant]
     Active Substance: ACENOCOUMAROL
     Indication: CARDIAC VALVE DISEASE
     Route: 065
     Dates: start: 2008
  2. ZOLDEM [Concomitant]
     Active Substance: ZOLPIDEM TARTRATE
     Indication: METASTASES TO BONE
     Route: 042
     Dates: start: 2016
  3. ENANTONE LP [Concomitant]
     Active Substance: LEUPROLIDE ACETATE
     Route: 042
     Dates: start: 2015
  4. ZYTIGA [Suspect]
     Active Substance: ABIRATERONE ACETATE
     Indication: PROSTATE CANCER METASTATIC
     Route: 048
     Dates: start: 20161208, end: 20161219

REACTIONS (8)
  - Cardiac failure [Fatal]
  - International normalised ratio abnormal [Unknown]
  - Platelet count decreased [Unknown]
  - Rhabdomyolysis [Recovered/Resolved with Sequelae]
  - Endocarditis [Fatal]
  - Haemoglobin decreased [Unknown]
  - Aspartate aminotransferase increased [Not Recovered/Not Resolved]
  - Prothrombin time abnormal [Unknown]

NARRATIVE: CASE EVENT DATE: 20161216
